FAERS Safety Report 17237394 (Version 2)
Quarter: 2020Q4

REPORT INFORMATION
  Report Type: Spontaneous
  Country: US (occurrence: US)
  Receive Date: 20200106
  Receipt Date: 20201007
  Transmission Date: 20210113
  Serious: Yes (Other)
  Sender: FDA-Public Use
  Company Number: US-PFIZER INC-2018188393

PATIENT
  Age: 50 Year
  Sex: Female
  Weight: 68.04 kg

DRUGS (4)
  1. PREMPRO [Suspect]
     Active Substance: ESTROGENS, CONJUGATED\MEDROXYPROGESTERONE ACETATE
     Indication: MENOPAUSAL SYMPTOMS
     Dosage: UNK, 1X/DAY
     Route: 048
     Dates: start: 2018
  2. GABAPENTIN. [Concomitant]
     Active Substance: GABAPENTIN
     Indication: NERVE COMPRESSION
  3. PREMPRO [Suspect]
     Active Substance: ESTROGENS, CONJUGATED\MEDROXYPROGESTERONE ACETATE
     Indication: FATIGUE
     Dosage: UNK, EVERY 3RD DAY
     Route: 048
  4. GABAPENTIN. [Concomitant]
     Active Substance: GABAPENTIN
     Indication: NERVE INJURY
     Dosage: 600MG, 3 TIMES DAILY
     Route: 048
     Dates: start: 2015

REACTIONS (6)
  - Condition aggravated [Recovering/Resolving]
  - Intentional product misuse [Unknown]
  - Sinusitis [Unknown]
  - Nerve compression [Recovering/Resolving]
  - Burning sensation [Recovering/Resolving]
  - Sinus headache [Unknown]

NARRATIVE: CASE EVENT DATE: 201804
